FAERS Safety Report 8698900 (Version 6)
Quarter: 2013Q1

REPORT INFORMATION
  Report Type: Report from Study
  Country: US (occurrence: US)
  Receive Date: 20120802
  Receipt Date: 20130124
  Transmission Date: 20140127
  Serious: Yes (Hospitalization, Other)
  Sender: FDA-Public Use
  Company Number: US-ABBOTT-12P-163-0961367-00

PATIENT
  Age: 45 None
  Sex: Female

DRUGS (15)
  1. HUMIRA [Suspect]
     Indication: CROHN^S DISEASE
     Dosage: 2 PENS ON DAY 1, LOADING DOSE
     Dates: start: 20120301
  2. HUMIRA [Suspect]
     Dosage: 2 PENS ON DAY 1
  3. HUMIRA [Suspect]
     Dosage: 2 PENS 2 WEEKS LATER
  4. HUMIRA [Suspect]
  5. MORPHINE SULFATE [Concomitant]
     Indication: PRODUCT USED FOR UNKNOWN INDICATION
     Dosage: 10MG/5ML
  6. IMITREX [Concomitant]
     Indication: MIGRAINE
  7. IMITREX [Concomitant]
  8. VITAMIN D3 [Concomitant]
     Indication: PRODUCT USED FOR UNKNOWN INDICATION
  9. ZANTAC [Concomitant]
     Indication: GASTROOESOPHAGEAL REFLUX DISEASE
  10. MORPHINE [Concomitant]
     Indication: FIBROMYALGIA
  11. MORPHINE [Concomitant]
     Indication: OSTEOARTHRITIS
  12. DURAGESIC [Concomitant]
     Indication: PAIN
  13. LIBRAX [Concomitant]
     Indication: ABDOMINAL PAIN UPPER
  14. MIRALAX [Concomitant]
     Indication: ANAL STENOSIS
  15. PHENERGAN [Concomitant]
     Indication: NAUSEA

REACTIONS (35)
  - Haematochezia [Recovered/Resolved]
  - Large intestinal ulcer [Recovering/Resolving]
  - Gastrointestinal disorder [Recovering/Resolving]
  - Oesophageal ulcer [Recovering/Resolving]
  - Erosive oesophagitis [Recovering/Resolving]
  - Malnutrition [Recovered/Resolved]
  - Crohn^s disease [Recovered/Resolved]
  - Diarrhoea [Recovered/Resolved]
  - Full blood count decreased [Recovered/Resolved]
  - Abdominal pain [Recovered/Resolved]
  - Polymenorrhoea [Recovered/Resolved]
  - Vaginal haemorrhage [Recovered/Resolved]
  - Alopecia [Unknown]
  - Abdominal pain upper [Unknown]
  - Oedema peripheral [Unknown]
  - Fatigue [Unknown]
  - Fibromyalgia [Unknown]
  - Urinary tract infection [Unknown]
  - Pain [Unknown]
  - Urinary hesitation [Unknown]
  - Urinary hesitation [Unknown]
  - Pain [Unknown]
  - Hypophagia [Unknown]
  - Proctalgia [Unknown]
  - Abdominal pain [Unknown]
  - Diarrhoea [Unknown]
  - Tooth infection [Unknown]
  - Influenza like illness [Not Recovered/Not Resolved]
  - Abdominal pain [Not Recovered/Not Resolved]
  - Muscle spasms [Unknown]
  - Pollakiuria [Unknown]
  - Vision blurred [Unknown]
  - Urinary tract infection [Not Recovered/Not Resolved]
  - Oropharyngitis fungal [Not Recovered/Not Resolved]
  - Dysphagia [Not Recovered/Not Resolved]
